FAERS Safety Report 7008692-8 (Version None)
Quarter: 2010Q3

REPORT INFORMATION
  Report Type: 
  Country: None (occurrence: None)
  Receive Date: 20100922
  Receipt Date: 20100919
  Transmission Date: 20110219
  Serious: Yes (Hospitalization)
  Sender: FDA-Public Use
  Company Number: CN-MERCK-1009CHN00020

PATIENT
  Age: 70 Year
  Sex: Male

DRUGS (1)
  1. PROSCAR [Suspect]
     Indication: BENIGN PROSTATIC HYPERPLASIA
     Route: 048
     Dates: start: 20100913, end: 20100915

REACTIONS (4)
  - DIABETES MELLITUS [None]
  - DYSURIA [None]
  - ENURESIS [None]
  - MICTURITION DISORDER [None]
